FAERS Safety Report 15937302 (Version 2)
Quarter: 2019Q2

REPORT INFORMATION
  Report Type: Spontaneous
  Country: US (occurrence: US)
  Receive Date: 20190208
  Receipt Date: 20190410
  Transmission Date: 20190711
  Serious: No
  Sender: FDA-Public Use
  Company Number: US-MYLANLABS-2019M1007251

PATIENT
  Age: 72 Year
  Sex: Female

DRUGS (1)
  1. BETAMETHASONE VALERATE FOAM [Suspect]
     Active Substance: BETAMETHASONE VALERATE
     Indication: SEBORRHOEIC DERMATITIS
     Dosage: UNK UNK, QD
     Route: 003

REACTIONS (1)
  - Dysgeusia [Unknown]
